FAERS Safety Report 8016916-3 (Version None)
Quarter: 2012Q1

REPORT INFORMATION
  Report Type: 
  Country: None (occurrence: None)
  Receive Date: 20120102
  Receipt Date: 20111222
  Transmission Date: 20120608
  Serious: Yes (Other)
  Sender: FDA-Public Use
  Company Number: PHEH2011US012412

PATIENT
  Sex: Male

DRUGS (1)
  1. TEKTURNA [Suspect]
     Indication: ESSENTIAL HYPERTENSION
     Dosage: 300 MG, DAILY
     Route: 048
     Dates: start: 20110204, end: 20111221

REACTIONS (2)
  - FALL [None]
  - LOSS OF CONSCIOUSNESS [None]
